FAERS Safety Report 7725817-7 (Version None)
Quarter: 2011Q3

REPORT INFORMATION
  Report Type: 
  Country: None (occurrence: None)
  Receive Date: 20110831
  Receipt Date: 20110819
  Transmission Date: 20111222
  Serious: Yes (Hospitalization)
  Sender: FDA-Public Use
  Company Number: 2011AP001837

PATIENT
  Age: 12 Year
  Sex: Male

DRUGS (4)
  1. VALPROIC ACID [Concomitant]
  2. OXCARBAZEPINE [Concomitant]
  3. ZONISAMIDE [Concomitant]
  4. LEVETIRACETAM [Suspect]
     Indication: COMPLEX PARTIAL SEIZURES
     Dosage: 400 MG;BID; 750 MG;BID; 1400 MG;QD; 1700 MG;QD

REACTIONS (5)
  - FALL [None]
  - MUSCLE TWITCHING [None]
  - MYOCLONUS [None]
  - DRUG INEFFECTIVE [None]
  - COMPLEX PARTIAL SEIZURES [None]
